FAERS Safety Report 15801307 (Version 1)
Quarter: 2019Q1

REPORT INFORMATION
  Report Type: Report from Study
  Country: DE (occurrence: DE)
  Receive Date: 20190109
  Receipt Date: 20190109
  Transmission Date: 20190417
  Serious: Yes (Death, Other)
  Sender: FDA-Public Use
  Company Number: DE-HIKMA PHARMACEUTICALS USA INC.-DE-H14001-19-00035

PATIENT
  Age: 72 Year
  Sex: Female
  Weight: 60 kg

DRUGS (1)
  1. RIBOTAX [Suspect]
     Active Substance: PACLITAXEL
     Indication: BREAST CANCER
     Route: 042
     Dates: start: 20181129, end: 20181227

REACTIONS (3)
  - Pneumonia [Fatal]
  - Acute kidney injury [Fatal]
  - Sepsis [Fatal]

NARRATIVE: CASE EVENT DATE: 20190102
